FAERS Safety Report 23207333 (Version 2)
Quarter: 2024Q4

REPORT INFORMATION
  Report Type: Spontaneous
  Country: US (occurrence: US)
  Receive Date: 20231120
  Receipt Date: 20241129
  Transmission Date: 20250114
  Serious: Yes (Life-Threatening, Hospitalization, Other)
  Sender: BRACCO
  Company Number: US-BRACCO-2023US00462

PATIENT
  Age: 82 Year
  Sex: Male

DRUGS (20)
  1. LUMASON [Suspect]
     Active Substance: SULFUR HEXAFLUORIDE
     Indication: Echocardiogram
     Dosage: 2 ML GIVEN DILUTED IN 10 ML
     Route: 042
     Dates: start: 20230203, end: 20230203
  2. LUMASON [Suspect]
     Active Substance: SULFUR HEXAFLUORIDE
     Indication: Echocardiogram
     Dosage: 2 ML GIVEN DILUTED IN 10 ML
     Route: 042
     Dates: start: 20230203, end: 20230203
  3. LUMASON [Suspect]
     Active Substance: SULFUR HEXAFLUORIDE
     Indication: Echocardiogram
     Dosage: 2 ML GIVEN DILUTED IN 10 ML
     Route: 042
     Dates: start: 20230203, end: 20230203
  4. LUMASON [Suspect]
     Active Substance: SULFUR HEXAFLUORIDE
     Dosage: 2 ML GIVEN DILUTED IN 10 ML
     Route: 042
     Dates: start: 20230203, end: 20230203
  5. LUMASON [Suspect]
     Active Substance: SULFUR HEXAFLUORIDE
     Dosage: 2 ML GIVEN DILUTED IN 10 ML
     Route: 042
     Dates: start: 20230203, end: 20230203
  6. LUMASON [Suspect]
     Active Substance: SULFUR HEXAFLUORIDE
     Dosage: 2 ML GIVEN DILUTED IN 10 ML
     Route: 042
     Dates: start: 20230203, end: 20230203
  7. LUMASON [Suspect]
     Active Substance: SULFUR HEXAFLUORIDE
     Dosage: UNK
     Dates: start: 20230203, end: 20230203
  8. LUMASON [Suspect]
     Active Substance: SULFUR HEXAFLUORIDE
     Dosage: UNK
     Dates: start: 20230203, end: 20230203
  9. LUMASON [Suspect]
     Active Substance: SULFUR HEXAFLUORIDE
     Dosage: UNK
     Dates: start: 20230203, end: 20230203
  10. ASPIRIN [Concomitant]
     Active Substance: ASPIRIN
  11. AMOXICILLIN [Concomitant]
     Active Substance: AMOXICILLIN
  12. ATORVASTATIN [Concomitant]
     Active Substance: ATORVASTATIN
  13. FLUDROCORTISONE [Concomitant]
     Active Substance: FLUDROCORTISONE
  14. HYDROCHLOROTHIAZIDE [Concomitant]
     Active Substance: HYDROCHLOROTHIAZIDE
  15. LEVOTHYROXINE [Concomitant]
     Active Substance: LEVOTHYROXINE
  16. METOPROLOL [Concomitant]
     Active Substance: METOPROLOL
  17. SODIUM CHLORIDE [Concomitant]
     Active Substance: SODIUM CHLORIDE
     Dosage: 2 ML LUMASON IN 10 ML
     Route: 042
     Dates: start: 20230203, end: 20230203
  18. POTASSIUM [Concomitant]
     Active Substance: POTASSIUM
  19. PREDNISONE [Concomitant]
     Active Substance: PREDNISONE
  20. TICAGRELOR [Concomitant]
     Active Substance: TICAGRELOR

REACTIONS (6)
  - Anaphylactic reaction [Recovered/Resolved]
  - Loss of consciousness [Recovered/Resolved]
  - Cyanosis [Recovered/Resolved]
  - Tremor [Recovered/Resolved]
  - Poor quality product administered [Unknown]
  - Product contamination [Unknown]

NARRATIVE: CASE EVENT DATE: 20230203
